FAERS Safety Report 25164337 (Version 1)
Quarter: 2025Q2

REPORT INFORMATION
  Report Type: Spontaneous
  Country: ES (occurrence: ES)
  Receive Date: 20250405
  Receipt Date: 20250405
  Transmission Date: 20250716
  Serious: Yes (Other)
  Sender: JIANGSU HANSOH PHARMACEUTICAL
  Company Number: ES-Jiangsu Hansoh Pharmaceutical Co., Ltd-2174358

PATIENT
  Age: 57 Year
  Sex: Female
  Weight: 69.6 kg

DRUGS (4)
  1. VINORELBINE TARTRATE [Suspect]
     Active Substance: VINORELBINE TARTRATE
     Indication: Invasive ductal breast carcinoma
     Dates: end: 20240423
  2. PALBOCICLIB [Suspect]
     Active Substance: PALBOCICLIB
     Dates: start: 20210629, end: 20230523
  3. Fulvestrant 250 mg inyectable 5 ml 2 jeringas precargadas [Concomitant]
     Dates: start: 20210629, end: 20230502
  4. RIBOCICLIB [Suspect]
     Active Substance: RIBOCICLIB
     Dates: start: 20230605, end: 20250109

REACTIONS (1)
  - Dermatitis acneiform [Recovered/Resolved]

NARRATIVE: CASE EVENT DATE: 20220531
